FAERS Safety Report 14026903 (Version 5)
Quarter: 2018Q2

REPORT INFORMATION
  Report Type: Report from Study
  Country: DE (occurrence: DE)
  Receive Date: 20170929
  Receipt Date: 20180611
  Transmission Date: 20180711
  Serious: Yes (Other)
  Sender: FDA-Public Use
  Company Number: DE-BRISTOL-MYERS SQUIBB COMPANY-BMS-2017-085161

PATIENT
  Age: 54 Year
  Sex: Male

DRUGS (8)
  1. ASPIRIN. [Concomitant]
     Active Substance: ASPIRIN
     Indication: PRODUCT USED FOR UNKNOWN INDICATION
     Dosage: 100 MG, UNK
     Route: 065
  2. RAMILICH [Concomitant]
     Active Substance: RAMIPRIL
     Indication: CEREBROVASCULAR DISORDER
     Dosage: 1 DF, UNK
     Route: 065
  3. NIVOLUMAB [Suspect]
     Active Substance: NIVOLUMAB
     Indication: NON-SMALL CELL LUNG CANCER
     Dosage: 3 MG/KG, Q2WK
     Route: 042
     Dates: start: 20161027
  4. METOPROLOL. [Concomitant]
     Active Substance: METOPROLOL
     Indication: CEREBROVASCULAR DISORDER
     Dosage: 1 DF, UNK
     Route: 065
  5. SIMVABETA [Concomitant]
     Active Substance: SIMVASTATIN
     Indication: PRODUCT USED FOR UNKNOWN INDICATION
     Dosage: 20 MG, UNK
     Route: 065
  6. CALCIMAGON                         /00751501/ [Concomitant]
     Active Substance: CALCIUM CARBONATE
     Indication: PRODUCT USED FOR UNKNOWN INDICATION
     Route: 065
  7. RANITIDIN [Concomitant]
     Active Substance: RANITIDINE HYDROCHLORIDE
     Indication: PRODUCT USED FOR UNKNOWN INDICATION
     Route: 065
  8. TAVEGIL                            /00137201/ [Concomitant]
     Active Substance: CLEMASTINE FUMARATE
     Indication: PRODUCT USED FOR UNKNOWN INDICATION
     Route: 065

REACTIONS (7)
  - Cough [Recovered/Resolved]
  - Muscle spasms [Unknown]
  - Hypothyroidism [Not Recovered/Not Resolved]
  - Back pain [Recovered/Resolved]
  - Pyrexia [Recovered/Resolved]
  - Pulpitis dental [Recovered/Resolved]
  - Polyneuropathy [Recovered/Resolved]

NARRATIVE: CASE EVENT DATE: 201701
